FAERS Safety Report 7771464 (Version 7)
Quarter: 2016Q3

REPORT INFORMATION
  Report Type: Spontaneous
  Country: BR (occurrence: BR)
  Receive Date: 20110124
  Receipt Date: 20160706
  Transmission Date: 20161109
  Serious: Yes (Other)
  Sender: FDA-Public Use
  Company Number: BR-PFIZER INC-2011011004

PATIENT
  Age: 68 Year
  Sex: Male
  Weight: 79 kg

DRUGS (10)
  1. VIAGRA [Suspect]
     Active Substance: SILDENAFIL CITRATE
     Dosage: 120 MG, BEFORE SEXUAL INTERCOUSE
     Route: 048
  2. VIAGRA [Suspect]
     Active Substance: SILDENAFIL CITRATE
     Dosage: 100 MG, 1X/DAY
     Route: 048
  3. SELOZOK [Concomitant]
     Active Substance: METOPROLOL SUCCINATE
     Indication: HYPERTENSION
     Dosage: 12.5 MG, 2X/DAY
     Dates: start: 1998
  4. VIAGRA [Suspect]
     Active Substance: SILDENAFIL CITRATE
     Indication: ERECTILE DYSFUNCTION
     Dosage: 50 MG, 2 TABLETS BEFORE SEXUAL INTERCOURSE
     Route: 048
  5. VIAGRA [Suspect]
     Active Substance: SILDENAFIL CITRATE
     Dosage: 50 MG, UNK
     Route: 048
     Dates: start: 20110110
  6. VIAGRA [Suspect]
     Active Substance: SILDENAFIL CITRATE
     Dosage: 2 TABLETS OF 50MG AT ONCE
     Route: 048
  7. CIALIS [Suspect]
     Active Substance: TADALAFIL
     Indication: ERECTILE DYSFUNCTION
     Dosage: 2 TABLETS OF 20 MG
     Route: 048
  8. SOMALGIN [Concomitant]
     Active Substance: ASPIRIN\DIHYDROXYALUMINUM AMINOACETATE ANHYDROUS\MAGNESIUM CARBONATE
     Indication: THROMBOSIS PROPHYLAXIS
     Dosage: 100 MG, 1X/DAY
  9. LOSARTAN. [Concomitant]
     Active Substance: LOSARTAN
     Indication: HYPERTENSION
     Dosage: UNK
     Dates: start: 1998
  10. VIAGRA [Suspect]
     Active Substance: SILDENAFIL CITRATE
     Dosage: 50 MG, 1X/DAY
     Route: 048
     Dates: start: 2003

REACTIONS (7)
  - Feeling of despair [Not Recovered/Not Resolved]
  - Depression [Not Recovered/Not Resolved]
  - Drug ineffective [Unknown]
  - Intentional product use issue [Unknown]
  - Irritability [Not Recovered/Not Resolved]
  - Nephrolithiasis [Unknown]
  - Frustration tolerance decreased [Not Recovered/Not Resolved]

NARRATIVE: CASE EVENT DATE: 201102
